FAERS Safety Report 23932915 (Version 2)
Quarter: 2024Q2

REPORT INFORMATION
  Report Type: Spontaneous
  Country: CH (occurrence: CH)
  Receive Date: 20240603
  Receipt Date: 20240611
  Transmission Date: 20240716
  Serious: Yes (Other)
  Sender: FDA-Public Use
  Company Number: None

PATIENT
  Age: 75 Year
  Sex: Female
  Weight: 73.9 kg

DRUGS (51)
  1. CIPRALEX [Suspect]
     Active Substance: ESCITALOPRAM OXALATE
     Indication: Product used for unknown indication
     Dosage: 10 003
     Route: 048
     Dates: start: 202010, end: 202204
  2. TORSEMIDE [Concomitant]
     Active Substance: TORSEMIDE
     Indication: Product used for unknown indication
     Dosage: 20 003
     Route: 048
     Dates: start: 202307
  3. TORSEMIDE [Concomitant]
     Active Substance: TORSEMIDE
     Indication: Product used for unknown indication
     Dosage: 10 003
     Route: 048
     Dates: start: 202205, end: 202306
  4. TORSEMIDE [Concomitant]
     Active Substance: TORSEMIDE
     Indication: Product used for unknown indication
     Dosage: 10 003
     Route: 048
     Dates: start: 202010, end: 202107
  5. AMLODIPINE\PERINDOPRIL [Concomitant]
     Active Substance: AMLODIPINE\PERINDOPRIL
     Indication: Product used for unknown indication
     Dosage: 10/10 1-0-0
     Route: 048
     Dates: start: 202205
  6. ASPIRIN [Concomitant]
     Active Substance: ASPIRIN
     Indication: Cerebrovascular accident
     Dosage: 100 003
     Route: 048
     Dates: start: 202205
  7. ASPIRIN [Concomitant]
     Active Substance: ASPIRIN
     Indication: Cerebrovascular accident
     Dosage: START DATE MAY BE EARLIER, FIRST DOCUMENTATION
     Route: 048
     Dates: start: 202007, end: 202107
  8. DAFALGAN [Concomitant]
     Active Substance: ACETAMINOPHEN
     Indication: Product used for unknown indication
     Dosage: START DATE MAY HAVE BEEN EARLIER, FIRST DOCUMENTATION ; AS NECESSARY
     Route: 048
     Dates: start: 202007
  9. DAFALGAN [Concomitant]
     Active Substance: ACETAMINOPHEN
     Indication: Product used for unknown indication
     Dosage: TIME INTERVAL: AS NECESSARY: START DATE MAY HAVE BEEN EARLIER, FIRST DOCUMENTATION ; AS NECESSARY
     Route: 048
     Dates: start: 202007
  10. TIZANIDINE [Suspect]
     Active Substance: TIZANIDINE
     Indication: Product used for unknown indication
     Dosage: DOSE UNKNOWN
     Route: 048
     Dates: start: 201803, end: 202006
  11. TIZANIDINE [Suspect]
     Active Substance: TIZANIDINE
     Indication: Product used for unknown indication
     Dosage: 2 MG 1-0-3
     Route: 048
     Dates: start: 20240502
  12. TIZANIDINE [Suspect]
     Active Substance: TIZANIDINE
     Indication: Product used for unknown indication
     Dosage: 6 003
     Route: 048
     Dates: start: 20240223, end: 20240501
  13. TIZANIDINE [Suspect]
     Active Substance: TIZANIDINE
     Indication: Product used for unknown indication
     Dosage: POSSIBLY NOT EXACT STOPP DATE
     Route: 048
     Dates: start: 202007, end: 202009
  14. TIZANIDINE [Suspect]
     Active Substance: TIZANIDINE
     Indication: Product used for unknown indication
     Dosage: 6 003
     Route: 048
     Dates: start: 202301, end: 20240206
  15. TIZANIDINE [Suspect]
     Active Substance: TIZANIDINE
     Indication: Product used for unknown indication
     Dosage: 2 MG 1-0-3
     Route: 048
     Dates: start: 20240207, end: 20240222
  16. PANTOPRAZOLE SODIUM [Concomitant]
     Active Substance: PANTOPRAZOLE SODIUM
     Indication: Product used for unknown indication
     Dosage: EVERY 48 HOURS
     Route: 048
     Dates: start: 202205
  17. PANTOPRAZOLE SODIUM [Concomitant]
     Active Substance: PANTOPRAZOLE SODIUM
     Indication: Product used for unknown indication
     Dosage: 20 003
     Route: 048
     Dates: start: 202108, end: 202204
  18. PANTOPRAZOLE SODIUM [Concomitant]
     Active Substance: PANTOPRAZOLE SODIUM
     Indication: Product used for unknown indication
     Dosage: EVERY 48 HOURS
     Route: 048
     Dates: start: 202301
  19. PANTOPRAZOLE SODIUM [Concomitant]
     Active Substance: PANTOPRAZOLE SODIUM
     Indication: Product used for unknown indication
     Dosage: START DATE MAY HAVE BEEN EARLIER, FIRST DOCUMENTATION
     Route: 048
     Dates: start: 202007, end: 202107
  20. PHENPROCOUMON [Concomitant]
     Active Substance: PHENPROCOUMON
     Indication: Atrial fibrillation
     Dosage: AS NECESSARY
     Route: 048
     Dates: start: 202205
  21. PHENPROCOUMON [Concomitant]
     Active Substance: PHENPROCOUMON
     Indication: Atrial fibrillation
     Dosage: TIME INTERVAL: AS NECESSARY
     Route: 048
     Dates: start: 202205
  22. PHENPROCOUMON [Concomitant]
     Active Substance: PHENPROCOUMON
     Indication: Atrial fibrillation
     Dosage: START DATE MAY HAVE BEEN EARLIER, FIRST DOCUMENTATION DOSE ACCORDING TO PROTHROMBIN TIME ; AS NEC...
     Route: 048
     Dates: start: 202007, end: 202107
  23. PHENPROCOUMON [Concomitant]
     Active Substance: PHENPROCOUMON
     Indication: Atrial fibrillation
     Dosage: TIME INTERVAL: AS NECESSARY: START DATE MAY HAVE BEEN EARLIER, FIRST DOCUMENTATION?DOSE ACCORDING...
     Route: 048
     Dates: start: 202007, end: 202107
  24. LAMOTRIGINE [Concomitant]
     Active Substance: LAMOTRIGINE
     Indication: Product used for unknown indication
     Dosage: 100 MG 1.5-0-1
     Route: 048
     Dates: start: 202010, end: 202107
  25. LAMOTRIGINE [Concomitant]
     Active Substance: LAMOTRIGINE
     Indication: Product used for unknown indication
     Dosage: 100 MG 1.5-0-1
     Route: 048
     Dates: start: 202010, end: 202107
  26. NEBIVOLOL [Concomitant]
     Active Substance: NEBIVOLOL
     Indication: Product used for unknown indication
     Dosage: START DATE MAY HAVE BEEN EARLIER, FIRST DOCUMENTATION
     Route: 048
     Dates: start: 202007, end: 202010
  27. AMLODIPINE [Concomitant]
     Active Substance: AMLODIPINE BESYLATE
     Indication: Product used for unknown indication
     Dosage: 10 003
     Route: 048
     Dates: start: 202010, end: 202205
  28. ATORVASTATIN [Concomitant]
     Active Substance: ATORVASTATIN
     Indication: Dyslipidaemia
     Dosage: 40 003
     Route: 048
     Dates: start: 202301
  29. ZELLER FEIGENSIRUP MIT SENNA [Concomitant]
     Indication: Product used for unknown indication
     Route: 048
     Dates: start: 202301, end: 20240206
  30. ZELLER FEIGENSIRUP MIT SENNA [Concomitant]
     Indication: Product used for unknown indication
     Route: 048
     Dates: start: 202301, end: 20240206
  31. METOLAZONE [Concomitant]
     Active Substance: METOLAZONE
     Indication: Product used for unknown indication
     Dosage: EVERY 48 HOURS
     Route: 048
     Dates: start: 202301
  32. SODIUM PICOSULFATE [Concomitant]
     Active Substance: SODIUM PICOSULFATE
     Indication: Product used for unknown indication
     Dosage: 10 GTT 1 DAYS
     Route: 048
     Dates: start: 202108, end: 202205
  33. SODIUM PICOSULFATE [Concomitant]
     Active Substance: SODIUM PICOSULFATE
     Indication: Product used for unknown indication
     Route: 048
     Dates: start: 202108, end: 202205
  34. LAMICTAL [Concomitant]
     Active Substance: LAMOTRIGINE
     Indication: Product used for unknown indication
     Dosage: 100 MG 1.5-0-1
     Route: 048
     Dates: start: 202108
  35. FIG [Concomitant]
     Active Substance: FIG
     Indication: Product used for unknown indication
     Dosage: START DATE MAY HAVE BEEN EARLIER, FIRST DOCUMENTATION DOSE UNKNOWN
     Route: 048
     Dates: start: 202007, end: 202009
  36. BRIVIACT [Concomitant]
     Active Substance: BRIVARACETAM
     Indication: Product used for unknown indication
     Dosage: 25 003
     Route: 048
     Dates: start: 202010
  37. LIORESAL [Concomitant]
     Active Substance: BACLOFEN
     Indication: Product used for unknown indication
     Dosage: AS NECESSARY
     Route: 048
     Dates: start: 202205, end: 202212
  38. LIORESAL [Concomitant]
     Active Substance: BACLOFEN
     Indication: Product used for unknown indication
     Dosage: START DATE MAY HAVE BEEN EARLIER, FIRST DOCUMENTATION?10 MG 2-1-0
     Route: 048
     Dates: start: 202007, end: 202107
  39. LIORESAL [Concomitant]
     Active Substance: BACLOFEN
     Indication: Product used for unknown indication
     Dosage: START DATE MAY HAVE BEEN EARLIER, FIRST DOCUMENTATION 10 MG 2-1-0
     Route: 048
     Dates: start: 202007, end: 202107
  40. LIORESAL [Concomitant]
     Active Substance: BACLOFEN
     Indication: Product used for unknown indication
     Dosage: TIME INTERVAL: AS NECESSARY: AS NECESSARY
     Route: 048
     Dates: start: 202205, end: 202212
  41. LIORESAL [Concomitant]
     Active Substance: BACLOFEN
     Indication: Product used for unknown indication
     Dosage: 10 003
     Route: 048
     Dates: start: 202301
  42. Novalgin [Concomitant]
     Indication: Product used for unknown indication
     Dosage: TIME INTERVAL: AS NECESSARY: AS NECESSARY
     Route: 048
     Dates: start: 202108
  43. ATORVASTATIN [Concomitant]
     Active Substance: ATORVASTATIN
     Indication: Product used for unknown indication
     Dosage: START DATE MAY HAVE BEEN EARLIER, FIRST DOCUMENTATION
     Route: 048
     Dates: start: 202007, end: 202212
  44. ATORVASTATIN [Concomitant]
     Active Substance: ATORVASTATIN
     Indication: Product used for unknown indication
     Route: 048
  45. ENOXAPARIN SODIUM [Concomitant]
     Active Substance: ENOXAPARIN SODIUM
     Indication: Product used for unknown indication
     Dosage: STRENGTH: 40MG/0.4ML
     Route: 058
     Dates: start: 202108, end: 202205
  46. CHOLECALCIFEROL [Concomitant]
     Active Substance: CHOLECALCIFEROL
     Indication: Product used for unknown indication
     Dosage: 4000 IE/ML ML 0.2-0-0.4
     Route: 048
     Dates: start: 202301, end: 20240206
  47. ESCITALOPRAM OXALATE [Suspect]
     Active Substance: ESCITALOPRAM OXALATE
     Indication: Product used for unknown indication
     Dosage: 10 003
     Route: 048
     Dates: start: 202301
  48. LISINOPRIL [Concomitant]
     Active Substance: LISINOPRIL
     Indication: Hypertensive cardiomyopathy
     Dosage: START DATE MAY HAVE BEEN EARLIER, FIRST DOCUMENTATION
     Route: 048
     Dates: start: 202007, end: 202009
  49. LISINOPRIL [Concomitant]
     Active Substance: LISINOPRIL
     Indication: Hypertensive cardiomyopathy
     Dosage: 20 003
     Route: 048
     Dates: start: 202010, end: 202205
  50. ESCITALOPRAM [Suspect]
     Active Substance: ESCITALOPRAM OXALATE
     Indication: Product used for unknown indication
     Dosage: 10 003
     Route: 048
     Dates: start: 201803, end: 202009
  51. ESCITALOPRAM [Suspect]
     Active Substance: ESCITALOPRAM OXALATE
     Indication: Product used for unknown indication
     Dosage: 10 003
     Route: 048
     Dates: start: 202205, end: 202212

REACTIONS (1)
  - Electrocardiogram QT prolonged [Not Recovered/Not Resolved]

NARRATIVE: CASE EVENT DATE: 20200314
